FAERS Safety Report 9168491 (Version 1)
Quarter: 2013Q1

REPORT INFORMATION
  Report Type: Spontaneous
  Country: CA (occurrence: CA)
  Receive Date: 20130318
  Receipt Date: 20130318
  Transmission Date: 20140127
  Serious: Yes (Other)
  Sender: FDA-Public Use
  Company Number: CA-BAYER-2013-030159

PATIENT
  Sex: Female

DRUGS (2)
  1. MIRENA [Suspect]
     Dosage: 20 ?G/D, CONT
     Route: 015
     Dates: start: 2008, end: 201209
  2. MEDICATIONS NOS [Suspect]

REACTIONS (13)
  - Depression [None]
  - Suicide attempt [None]
  - Bipolar disorder [None]
  - Anxiety disorder [None]
  - Affective disorder [None]
  - Rash [None]
  - Migraine [None]
  - Depressed mood [None]
  - Mood swings [None]
  - Abnormal behaviour [None]
  - Affective disorder [None]
  - Pregnancy [None]
  - Maternal exposure before pregnancy [None]
